FAERS Safety Report 8139094-9 (Version None)
Quarter: 2012Q1

REPORT INFORMATION
  Report Type: 
  Country: None (occurrence: None)
  Receive Date: 20120215
  Receipt Date: 20120210
  Transmission Date: 20120608
  Serious: Yes (Other)
  Sender: FDA-Public Use
  Company Number: US-PFIZER INC-2012037192

PATIENT
  Sex: Female
  Weight: 136 kg

DRUGS (8)
  1. PRISTIQ [Suspect]
     Indication: BIPOLAR DISORDER
     Dosage: 25 MG, 1X/DAY
     Route: 048
     Dates: start: 20120131, end: 20120202
  2. PROZAC [Suspect]
     Indication: PERSONALITY DISORDER
  3. GABAPENTIN [Concomitant]
     Dosage: UNK
  4. TOPAMAX [Concomitant]
     Dosage: UNK
  5. PRISTIQ [Suspect]
     Indication: PERSONALITY DISORDER
  6. PRISTIQ [Suspect]
     Indication: DEPRESSION
     Dosage: 50 MG, 1X/DAY
     Route: 048
     Dates: end: 20120130
  7. PROZAC [Suspect]
     Indication: DEPRESSION
     Dosage: 20 MG, 1X/DAY
     Route: 048
     Dates: start: 20120203
  8. PROZAC [Suspect]
     Indication: BIPOLAR DISORDER

REACTIONS (2)
  - FEELING ABNORMAL [None]
  - ABNORMAL BEHAVIOUR [None]
